FAERS Safety Report 9168074 (Version 1)
Quarter: 2013Q1

REPORT INFORMATION
  Report Type: Report from Study
  Country: BR (occurrence: BR)
  Receive Date: 20130318
  Receipt Date: 20130318
  Transmission Date: 20140127
  Serious: Yes (Disabling, Other)
  Sender: FDA-Public Use
  Company Number: BR-BAYER-2013-030027

PATIENT
  Age: 44 Year
  Sex: Female

DRUGS (3)
  1. BETAFERON [Suspect]
     Indication: MULTIPLE SCLEROSIS
     Dosage: 1 ML, QOD
     Route: 058
     Dates: start: 201203
  2. CARBAMAZEPINE [Concomitant]
     Dosage: 3 DF, QD
     Route: 048
  3. BACLOFEN [Concomitant]
     Indication: NEURALGIA
     Dosage: 2 DF, QD
     Route: 048

REACTIONS (11)
  - Gait disturbance [Not Recovered/Not Resolved]
  - Facial neuralgia [Not Recovered/Not Resolved]
  - Malaise [Not Recovered/Not Resolved]
  - Fall [Not Recovered/Not Resolved]
  - Speech disorder [Not Recovered/Not Resolved]
  - Sensation of heaviness [Not Recovered/Not Resolved]
  - Dysstasia [None]
  - Memory impairment [Not Recovered/Not Resolved]
  - Depression [Not Recovered/Not Resolved]
  - Tearfulness [Not Recovered/Not Resolved]
  - Swelling face [Not Recovered/Not Resolved]
